FAERS Safety Report 9560836 (Version 2)
Quarter: 2014Q2

REPORT INFORMATION
  Report Type: Spontaneous
  Country: US (occurrence: US)
  Receive Date: 20130927
  Receipt Date: 20140423
  Transmission Date: 20141212
  Serious: No
  Sender: FDA-Public Use
  Company Number: US-BIOGENIDEC-2013BI054542

PATIENT
  Age: 57 Year
  Sex: Female

DRUGS (3)
  1. TECFIDERA [Suspect]
     Indication: MULTIPLE SCLEROSIS
     Route: 048
     Dates: start: 20130601, end: 20130608
  2. TECFIDERA [Suspect]
     Indication: MULTIPLE SCLEROSIS
     Route: 048
     Dates: start: 20130608
  3. SYNTHROID [Concomitant]

REACTIONS (13)
  - Ear pain [Not Recovered/Not Resolved]
  - Contusion [Unknown]
  - Anxiety [Not Recovered/Not Resolved]
  - Dermatitis contact [Unknown]
  - Palpitations [Recovered/Resolved]
  - Ear pruritus [Not Recovered/Not Resolved]
  - Flushing [Recovered/Resolved]
  - Rash generalised [Recovered/Resolved]
  - Pruritus [Not Recovered/Not Resolved]
  - Feeling hot [Recovered/Resolved]
  - Hot flush [Recovered/Resolved]
  - Erythema [Recovered/Resolved]
  - Rash [Not Recovered/Not Resolved]
